APPROVED DRUG PRODUCT: OTIPRIO
Active Ingredient: CIPROFLOXACIN
Strength: 6% (60MG/ML)
Dosage Form/Route: INJECTABLE, SUSPENSION;OTIC
Application: N207986 | Product #001
Applicant: ALK-ABELLO INC
Approved: Dec 10, 2015 | RLD: Yes | RS: No | Type: DISCN

PATENTS:
Patent 8318817 | Expires: Apr 27, 2030
Patent 9603796 | Expires: Apr 21, 2029
Patent 9205048 | Expires: Apr 21, 2029
Patent 11040004 | Expires: Nov 12, 2037
Patent 11246863 | Expires: Nov 27, 2038
Patent 11369566 | Expires: Apr 21, 2029
Patent 9220796 | Expires: Jul 1, 2035
Patent 9233068 | Expires: Dec 11, 2029